FAERS Safety Report 5240988-2 (Version None)
Quarter: 2007Q1

REPORT INFORMATION
  Report Type: 
  Country: None (occurrence: None)
  Receive Date: 20061201
  Receipt Date: 20060803
  Transmission Date: 20070707
  Serious: No
  Sender: FDA-Public Use
  Company Number: 2006PV018854

PATIENT
  Age: 74 Year
  Sex: Male

DRUGS (15)
  1. BYETTA [Suspect]
     Indication: DIABETES MELLITUS NON-INSULIN-DEPENDENT
     Dosage: SEE IMAGE
     Route: 058
     Dates: start: 20060301, end: 20060401
  2. BYETTA [Suspect]
     Indication: DIABETES MELLITUS NON-INSULIN-DEPENDENT
     Dosage: SEE IMAGE
     Route: 058
     Dates: start: 20060401
  3. AVANDIA [Concomitant]
  4. PRANDIN [Concomitant]
  5. METFORMIN HCL [Concomitant]
  6. VALSARTAN [Concomitant]
  7. ATENOLOL [Concomitant]
  8. HYDROCHLOROTHIAZIDE [Concomitant]
  9. MENTAX [Concomitant]
  10. ECOTRIN [Concomitant]
  11. PLAVIX [Concomitant]
  12. LIPITOR [Concomitant]
  13. PROCRIT [Concomitant]
  14. FOSAMAX [Concomitant]
  15. KAYEXALATE [Concomitant]

REACTIONS (6)
  - ABDOMINAL PAIN UPPER [None]
  - BLOOD GLUCOSE DECREASED [None]
  - BLOOD GLUCOSE INCREASED [None]
  - HEART RATE INCREASED [None]
  - NAUSEA [None]
  - WEIGHT DECREASED [None]
